FAERS Safety Report 24675303 (Version 2)
Quarter: 2024Q4

REPORT INFORMATION
  Report Type: Spontaneous
  Country: US (occurrence: US)
  Receive Date: 20241128
  Receipt Date: 20241128
  Transmission Date: 20250115
  Serious: Yes (Other)
  Sender: ROCHE
  Company Number: US-ROCHE-10000138943

PATIENT
  Age: 43 Year
  Sex: Female
  Weight: 45.36 kg

DRUGS (6)
  1. OCREVUS [Suspect]
     Active Substance: OCRELIZUMAB
     Indication: Multiple sclerosis
     Dosage: DILUTED IN 500 ML NORMAL SALINE THROUGH PERIPHERAL IV
     Route: 042
     Dates: start: 20181031, end: 20240112
  2. REBIF [Concomitant]
     Active Substance: INTERFERON BETA-1A
     Dates: start: 201008
  3. REBIF [Concomitant]
     Active Substance: INTERFERON BETA-1A
  4. TECFIDERA [Concomitant]
     Active Substance: DIMETHYL FUMARATE
     Indication: Multiple sclerosis
     Dates: start: 201304
  5. GILENYA [Concomitant]
     Active Substance: FINGOLIMOD HYDROCHLORIDE
     Indication: Multiple sclerosis
     Dates: start: 201507, end: 201606
  6. PLEGRIDY [Concomitant]
     Active Substance: PEGINTERFERON BETA-1A
     Indication: Multiple sclerosis
     Dates: start: 201609, end: 201804

REACTIONS (6)
  - Clostridium difficile colitis [Not Recovered/Not Resolved]
  - Weight decreased [Unknown]
  - Drug ineffective [Unknown]
  - Vision blurred [Recovered/Resolved]
  - Anaphylactic reaction [Unknown]
  - Drug hypersensitivity [Not Recovered/Not Resolved]

NARRATIVE: CASE EVENT DATE: 20200522
